FAERS Safety Report 17982376 (Version 5)
Quarter: 2022Q1

REPORT INFORMATION
  Report Type: Spontaneous
  Country: US (occurrence: US)
  Receive Date: 20200706
  Receipt Date: 20220201
  Transmission Date: 20220423
  Serious: Yes (Other)
  Sender: FDA-Public Use
  Company Number: US-GILEAD-2020-0478281

PATIENT
  Age: 33 Year
  Sex: Female
  Weight: 68.934 kg

DRUGS (34)
  1. VIREAD [Suspect]
     Active Substance: TENOFOVIR DISOPROXIL FUMARATE
     Indication: HIV infection
     Dosage: UNK
     Route: 048
     Dates: start: 201302, end: 2017
  2. TRUVADA [Suspect]
     Active Substance: EMTRICITABINE\TENOFOVIR DISOPROXIL FUMARATE
     Indication: HIV infection
     Dosage: UNK
     Route: 048
     Dates: start: 201302, end: 201709
  3. ATRIPLA [Suspect]
     Active Substance: EFAVIRENZ\EMTRICITABINE\TENOFOVIR DISOPROXIL FUMARATE
     Indication: HIV infection
     Dosage: UNK
     Route: 048
     Dates: start: 201403, end: 20180209
  4. ATRIPLA [Suspect]
     Active Substance: EFAVIRENZ\EMTRICITABINE\TENOFOVIR DISOPROXIL FUMARATE
     Dosage: UNK
     Route: 048
     Dates: start: 2006, end: 2019
  5. CALCIUM/VITAMIN D [CALCIUM CARBONATE;ERGOCALCIFEROL] [Concomitant]
  6. CALCIUM [Concomitant]
     Active Substance: CALCIUM
  7. KEPPRA XR [Concomitant]
     Active Substance: LEVETIRACETAM
  8. PHENYTOIN SODIUM [Concomitant]
     Active Substance: PHENYTOIN SODIUM
  9. INFLUENZA VIRUS VACCINE [Concomitant]
     Active Substance: INFLUENZA VIRUS VACCINE
  10. TYLENOL [Concomitant]
     Active Substance: ACETAMINOPHEN
  11. AMOXICILLIN [Concomitant]
     Active Substance: AMOXICILLIN
  12. ASPIRIN [Concomitant]
     Active Substance: ASPIRIN
  13. BACTRIM [Concomitant]
     Active Substance: SULFAMETHOXAZOLE\TRIMETHOPRIM
  14. CORTISONE [Concomitant]
     Active Substance: CORTISONE
  15. IBUPROFEN [Concomitant]
     Active Substance: IBUPROFEN
  16. NAPROXEN [Concomitant]
     Active Substance: NAPROXEN
  17. DICLOFENAC [Concomitant]
     Active Substance: DICLOFENAC
  18. PHENETICILLIN [Concomitant]
     Active Substance: PHENETICILLIN
  19. PREDNISOLONE [Concomitant]
     Active Substance: PREDNISOLONE
  20. LIPIODOL [Concomitant]
     Active Substance: ETHIODIZED OIL
  21. IODIPAMIDE MEGLUMINE [Concomitant]
     Active Substance: IODIPAMIDE MEGLUMINE
  22. CONRAY (M I) [Concomitant]
  23. CYSTOGRAFIN [Concomitant]
     Active Substance: DIATRIZOATE MEGLUMINE
  24. GADOBUTROL [Concomitant]
     Active Substance: GADOBUTROL
  25. GADODIAMIDE [Concomitant]
     Active Substance: GADODIAMIDE
  26. GADOTERIDOL [Concomitant]
     Active Substance: GADOTERIDOL
  27. PROZAC [Concomitant]
     Active Substance: FLUOXETINE HYDROCHLORIDE
  28. PAXIL CR [Concomitant]
     Active Substance: PAROXETINE HYDROCHLORIDE
  29. ZOLOFT [Concomitant]
     Active Substance: SERTRALINE HYDROCHLORIDE
  30. GENVOYA [Concomitant]
     Active Substance: COBICISTAT\ELVITEGRAVIR\EMTRICITABINE\TENOFOVIR ALAFENAMIDE FUMARATE
  31. PHENYTOIN SODIUM [Concomitant]
     Active Substance: PHENYTOIN SODIUM
  32. SERTRALINE HYDROCHLORIDE [Concomitant]
     Active Substance: SERTRALINE HYDROCHLORIDE
  33. MAVYRET [Concomitant]
     Active Substance: GLECAPREVIR\PIBRENTASVIR
  34. LEVETIRACETAM [Concomitant]
     Active Substance: LEVETIRACETAM

REACTIONS (12)
  - Osteonecrosis [Unknown]
  - Multiple fractures [Not Recovered/Not Resolved]
  - Osteoporosis [Unknown]
  - Renal injury [Unknown]
  - Bone loss [Unknown]
  - Bone density decreased [Unknown]
  - Skeletal injury [Unknown]
  - Osteopenia [Not Recovered/Not Resolved]
  - Back pain [Unknown]
  - Mobility decreased [Not Recovered/Not Resolved]
  - Anxiety [Not Recovered/Not Resolved]
  - Depression [Not Recovered/Not Resolved]

NARRATIVE: CASE EVENT DATE: 20160101
